FAERS Safety Report 6759960-6 (Version None)
Quarter: 2010Q2

REPORT INFORMATION
  Report Type: 
  Country: None (occurrence: None)
  Receive Date: 20100608
  Receipt Date: 20100602
  Transmission Date: 20101027
  Serious: Yes (Hospitalization, Other)
  Sender: FDA-Public Use
  Company Number: US-ELI_LILLY_AND_COMPANY-US201006001338

PATIENT
  Age: 60 Year
  Sex: Male

DRUGS (1)
  1. HUMULIN 70/30 [Suspect]

REACTIONS (6)
  - CEREBROVASCULAR ACCIDENT [None]
  - GANGRENE [None]
  - INJECTION SITE NODULE [None]
  - MALAISE [None]
  - MYOCARDIAL INFARCTION [None]
  - PROSTATE CANCER [None]
